FAERS Safety Report 25809101 (Version 1)
Quarter: 2025Q3

REPORT INFORMATION
  Report Type: Spontaneous
  Country: EU (occurrence: EU)
  Receive Date: 20250916
  Receipt Date: 20250916
  Transmission Date: 20251020
  Serious: Yes (Hospitalization)
  Sender: ELI LILLY AND COMPANY
  Company Number: EU-ELI_LILLY_AND_COMPANY-FR202509010002

PATIENT
  Age: 77 Year
  Sex: Female

DRUGS (10)
  1. GEMCITABINE HYDROCHLORIDE [Suspect]
     Active Substance: GEMCITABINE HYDROCHLORIDE
     Indication: Cholangiocarcinoma
     Route: 042
     Dates: start: 202505, end: 20250718
  2. IMFINZI [Concomitant]
     Active Substance: DURVALUMAB
     Indication: Cholangiocarcinoma
     Route: 042
     Dates: start: 202505, end: 20250718
  3. LEVOTHYROXINE SODIUM [Concomitant]
     Active Substance: LEVOTHYROXINE SODIUM
     Indication: Product used for unknown indication
     Dosage: 137.5 UG, EACH MORNING
  4. PANCRELIPASE [Concomitant]
     Active Substance: PANCRELIPASE
     Indication: Product used for unknown indication
     Dosage: 2 DOSAGE FORM, EACH MORNING
  5. ALPRAZOLAM [Concomitant]
     Active Substance: ALPRAZOLAM
     Indication: Product used for unknown indication
     Dosage: 0.5 MG, DAILY
  6. CANDESARTAN CILEXETIL [Concomitant]
     Active Substance: CANDESARTAN CILEXETIL
     Indication: Product used for unknown indication
     Dosage: 4 MG, EACH MORNING
  7. DIOSMIN [Concomitant]
     Active Substance: DIOSMIN
     Indication: Product used for unknown indication
  8. PREDNISONE [Concomitant]
     Active Substance: PREDNISONE
     Indication: Product used for unknown indication
     Dosage: 20 MG, EACH MORNING
  9. ESOMEPRAZOLE [Concomitant]
     Active Substance: ESOMEPRAZOLE
     Indication: Product used for unknown indication
     Dosage: 20 MG, EACH MORNING
  10. CISPLATIN [Concomitant]
     Active Substance: CISPLATIN
     Indication: Cholangiocarcinoma

REACTIONS (1)
  - Myocarditis-myositis-myasthenia gravis overlap syndrome [Recovering/Resolving]

NARRATIVE: CASE EVENT DATE: 20250726
